FAERS Safety Report 20930717 (Version 1)
Quarter: 2022Q2

REPORT INFORMATION
  Report Type: Spontaneous
  Country: US (occurrence: None)
  Receive Date: 20220608
  Receipt Date: 20220608
  Transmission Date: 20220721
  Serious: No
  Sender: FDA-Public Use
  Company Number: US-ROCHE-3032160

PATIENT
  Sex: Female

DRUGS (2)
  1. ENSPRYNG [Suspect]
     Active Substance: SATRALIZUMAB-MWGE
     Indication: Neuromyelitis optica spectrum disorder
     Route: 058
     Dates: start: 202011
  2. HUMAN PLASMA [Concomitant]
     Active Substance: HUMAN PLASMA
     Dosage: EVERY OTHER WEEK
     Route: 042

REACTIONS (14)
  - Tremor [Unknown]
  - Visual impairment [Unknown]
  - Underweight [Unknown]
  - Hypersensitivity [Unknown]
  - Fatigue [Unknown]
  - Reading disorder [Not Recovered/Not Resolved]
  - Anxiety [Not Recovered/Not Resolved]
  - Nervousness [Not Recovered/Not Resolved]
  - Stress [Not Recovered/Not Resolved]
  - Vision blurred [Unknown]
  - Tooth fracture [Not Recovered/Not Resolved]
  - Tooth disorder [Not Recovered/Not Resolved]
  - Bone disorder [Not Recovered/Not Resolved]
  - Visual impairment [Not Recovered/Not Resolved]
